FAERS Safety Report 24456730 (Version 3)
Quarter: 2024Q4

REPORT INFORMATION
  Report Type: Spontaneous
  Country: JP (occurrence: JP)
  Receive Date: 20241017
  Receipt Date: 20241223
  Transmission Date: 20250115
  Serious: Yes (Life-Threatening, Hospitalization, Other)
  Sender: SUNOVION
  Company Number: JP-DSPHARMA-2024SMP013860

PATIENT

DRUGS (6)
  1. LATUDA [Suspect]
     Active Substance: LURASIDONE HYDROCHLORIDE
     Indication: Bipolar disorder
     Dosage: 40 MG, QD
     Route: 048
     Dates: start: 20231219, end: 20240805
  2. RISPERIDONE [Suspect]
     Active Substance: RISPERIDONE
     Indication: Bipolar disorder
     Dosage: 1 MG, QD
     Route: 048
     Dates: start: 20240122, end: 20240805
  3. DESOGESTREL\ETHINYL ESTRADIOL [Suspect]
     Active Substance: DESOGESTREL\ETHINYL ESTRADIOL
     Indication: Contraception
     Dosage: 1 DF, QD
     Route: 048
     Dates: end: 20240805
  4. LORAZEPAM [Concomitant]
     Active Substance: LORAZEPAM
     Indication: Bipolar disorder
     Dosage: 1 MG, TID
     Route: 048
     Dates: start: 20231127
  5. BROTIZOLAM [Concomitant]
     Active Substance: BROTIZOLAM
     Indication: Bipolar disorder
     Dosage: 0.25 MG, QD
     Route: 048
     Dates: start: 20231127
  6. LAMOTRIGINE [Concomitant]
     Active Substance: LAMOTRIGINE
     Indication: Bipolar disorder
     Dosage: 100 MG, BID
     Route: 048
     Dates: start: 20240214

REACTIONS (3)
  - Deep vein thrombosis [Not Recovered/Not Resolved]
  - Pulmonary embolism [Not Recovered/Not Resolved]
  - Prescribed overdose [Unknown]

NARRATIVE: CASE EVENT DATE: 20231219
